FAERS Safety Report 5236955-5 (Version None)
Quarter: 2007Q1

REPORT INFORMATION
  Report Type: 
  Country: None (occurrence: None)
  Receive Date: 20070213
  Receipt Date: 20070207
  Transmission Date: 20070707
  Serious: Yes (Other)
  Sender: FDA-Public Use
  Company Number: GBWYE176817JUN03

PATIENT
  Sex: Male
  Weight: 80.9 kg

DRUGS (15)
  1. RAPAMUNE [Suspect]
     Indication: RENAL FAILURE
     Dosage: 12MG - LOADING DOSE
     Dates: start: 20030224, end: 20030224
  2. RAPAMUNE [Interacting]
     Indication: IMMUNOSUPPRESSANT DRUG THERAPY
     Dosage: 4MG
     Dates: start: 20030225, end: 20040212
  3. METOPROLOL TARTRATE [Concomitant]
     Indication: RENAL IMPAIRMENT
     Dosage: UNKNOWN
  4. MAXEPA [Concomitant]
     Indication: RENAL IMPAIRMENT
     Dosage: UNKNOWN
  5. ASPIRIN [Concomitant]
     Indication: PROPHYLAXIS
     Dosage: UNKNOWN
  6. ATORVASTATIN [Concomitant]
     Indication: BLOOD CHOLESTEROL INCREASED
     Dosage: UNKNOWN
  7. ERYMAX [Interacting]
     Indication: LOWER RESPIRATORY TRACT INFECTION
     Dosage: UNKNOWN
     Dates: start: 20030529, end: 20030605
  8. GTN-S [Concomitant]
     Dosage: UNKNOWN
  9. AMLODIPINE [Concomitant]
     Indication: RENAL IMPAIRMENT
     Dosage: UNKNOWN
  10. CIPROFLOXACIN HCL [Concomitant]
     Indication: LOWER RESPIRATORY TRACT INFECTION
     Dosage: UNKNOWN
     Dates: start: 20030403, end: 20030410
  11. AMOXICILLIN [Concomitant]
     Indication: LOWER RESPIRATORY TRACT INFECTION
     Dosage: UNKNOWN
     Dates: start: 20030315, end: 20030322
  12. PAMIDRONATE DISODIUM [Concomitant]
     Indication: BLOOD CALCIUM INCREASED
     Dosage: UNKNOWN
     Dates: start: 20030416, end: 20030416
  13. DOXYCYCLINE [Interacting]
     Indication: LOWER RESPIRATORY TRACT INFECTION
     Dosage: UNKNOWN
     Dates: start: 20030529, end: 20030605
  14. IRBESARTAN [Concomitant]
     Indication: RENAL IMPAIRMENT
     Dosage: UNKNOWN
  15. COLCHICINE [Concomitant]
     Indication: GOUT
     Dosage: UNKNOWN

REACTIONS (2)
  - DRUG INTERACTION [None]
  - DRUG LEVEL INCREASED [None]
